FAERS Safety Report 6663713-7 (Version None)
Quarter: 2010Q2

REPORT INFORMATION
  Report Type: 
  Country: None (occurrence: None)
  Receive Date: 20100401
  Receipt Date: 20100322
  Transmission Date: 20101027
  Serious: Yes (Disabling, Other)
  Sender: FDA-Public Use
  Company Number: FI-GENZYME-RENA-1000674

PATIENT
  Sex: Male
  Weight: 92 kg

DRUGS (6)
  1. RENAGEL [Suspect]
     Indication: HYPERPHOSPHATAEMIA
     Dosage: 6.4 G, QD
     Route: 048
     Dates: start: 20080215
  2. RENAGEL [Suspect]
     Indication: HYPERPARATHYROIDISM SECONDARY
  3. LANTHANUM CARBONATE [Suspect]
     Indication: HYPERPARATHYROIDISM SECONDARY
     Dosage: 3 G, QD
     Route: 065
     Dates: start: 20080301, end: 20100323
  4. CINACALCET HYDROCHLORIDE [Suspect]
     Indication: HYPERCALCAEMIA
     Dosage: 30 MG, QD
     Route: 065
     Dates: start: 20090901, end: 20100323
  5. ARANESP [Concomitant]
     Indication: DRUG USE FOR UNKNOWN INDICATION
     Dosage: 40 MCG, 1X/W
     Route: 065
     Dates: start: 20070101
  6. AMARYL [Concomitant]
     Indication: DRUG USE FOR UNKNOWN INDICATION
     Dosage: 2 MG, QD
     Route: 065
     Dates: start: 20050101

REACTIONS (3)
  - MENISCAL DEGENERATION [None]
  - OSTEONECROSIS [None]
  - STRESS FRACTURE [None]
